FAERS Safety Report 14021960 (Version 1)
Quarter: 2017Q3

REPORT INFORMATION
  Report Type: Spontaneous
  Country: US (occurrence: US)
  Receive Date: 20170928
  Receipt Date: 20170928
  Transmission Date: 20171128
  Serious: No
  Sender: FDA-Public Use
  Company Number: None

PATIENT
  Age: 67 Year
  Sex: Male
  Weight: 99 kg

DRUGS (3)
  1. HEMP OIL [Concomitant]
     Active Substance: CANNABIS SATIVA SEED OIL
  2. LISINOPRYL [Concomitant]
  3. HYDROCODONE [Suspect]
     Active Substance: HYDROCODONE

REACTIONS (1)
  - Drug screen positive [None]

NARRATIVE: CASE EVENT DATE: 20170928
